FAERS Safety Report 7461175-3 (Version None)
Quarter: 2011Q2

REPORT INFORMATION
  Report Type: 
  Country: None (occurrence: None)
  Receive Date: 20110505
  Receipt Date: 20110426
  Transmission Date: 20111010
  Serious: Yes (Hospitalization)
  Sender: FDA-Public Use
  Company Number: US-ASTRAZENECA-2010SE45005

PATIENT
  Age: 50 Year
  Sex: Female
  Weight: 89.8 kg

DRUGS (3)
  1. SEROQUEL XR [Suspect]
     Indication: POST-TRAUMATIC STRESS DISORDER
     Route: 048
  2. NEXIUM [Suspect]
     Route: 048
  3. SEROQUEL XR [Suspect]
     Indication: BIPOLAR DISORDER
     Route: 048

REACTIONS (7)
  - MYCOTOXICOSIS [None]
  - INTENTIONAL SELF-INJURY [None]
  - DRUG DOSE OMISSION [None]
  - MALAISE [None]
  - GALLBLADDER OPERATION [None]
  - HERNIA REPAIR [None]
  - HIATUS HERNIA [None]
